FAERS Safety Report 23936798 (Version 3)
Quarter: 2024Q3

REPORT INFORMATION
  Report Type: Spontaneous
  Country: US (occurrence: US)
  Receive Date: 20240604
  Receipt Date: 20240705
  Transmission Date: 20241016
  Serious: No
  Sender: SANOFI AVENTIS
  Company Number: US-SANOFI-02069433

PATIENT
  Age: 75 Year
  Sex: Female
  Weight: 61.6 kg

DRUGS (6)
  1. DUPIXENT [Suspect]
     Active Substance: DUPILUMAB
     Indication: Eczema
     Dosage: 300 MG, QOW
     Route: 065
     Dates: start: 20240213
  2. NAPROXEN [Concomitant]
     Active Substance: NAPROXEN
  3. OXYCODONE [Concomitant]
     Active Substance: OXYCODONE
  4. BIOTIN [Concomitant]
     Active Substance: BIOTIN
  5. FLAXSEED [Concomitant]
     Active Substance: FLAX SEED
  6. TRAZODONE [Concomitant]
     Active Substance: TRAZODONE HYDROCHLORIDE

REACTIONS (4)
  - Sinusitis [Unknown]
  - Pruritus [Unknown]
  - Accidental exposure to product [Unknown]
  - Exposure via skin contact [Unknown]

NARRATIVE: CASE EVENT DATE: 20240101
